FAERS Safety Report 5406491-1 (Version None)
Quarter: 2007Q3

REPORT INFORMATION
  Report Type: 
  Country: None (occurrence: None)
  Receive Date: 20070806
  Receipt Date: 20070727
  Transmission Date: 20080115
  Serious: Yes (Hospitalization)
  Sender: FDA-Public Use
  Company Number: GR-ABBOTT-07P-066-0374524-00

PATIENT
  Age: 74 Year
  Sex: Female

DRUGS (8)
  1. HUMIRA [Suspect]
     Indication: PSORIATIC ARTHROPATHY
     Route: 058
     Dates: start: 20070418, end: 20070701
  2. FUROSEMIDE [Concomitant]
     Indication: RENAL FAILURE
     Route: 065
  3. PERINDOPRIL ERBUMINE [Concomitant]
     Indication: RENAL FAILURE
     Route: 065
  4. OMEPRAZOLE [Concomitant]
     Indication: GASTROOESOPHAGEAL REFLUX PROPHYLAXIS
     Route: 065
  5. THYRORMONE [Concomitant]
     Indication: HYPOTHYROIDISM
     Route: 065
  6. BROMAZEPAM [Concomitant]
     Indication: DRUG USE FOR UNKNOWN INDICATION
     Route: 065
  7. METHOTREXATE [Concomitant]
     Indication: PSORIATIC ARTHROPATHY
     Route: 048
     Dates: start: 20070418
  8. FOLIC ACID [Concomitant]
     Indication: ADVERSE DRUG REACTION
     Route: 048
     Dates: start: 20070418

REACTIONS (2)
  - ANAEMIA [None]
  - ENDOCARDITIS ENTEROCOCCAL [None]
